FAERS Safety Report 4376399-1 (Version None)
Quarter: 2004Q2

REPORT INFORMATION
  Report Type: 
  Country: None (occurrence: None)
  Receive Date: 20040608
  Receipt Date: 20040525
  Transmission Date: 20050107
  Serious: Yes (Hospitalization, Other)
  Sender: FDA-Public Use
  Company Number: USA-2004-0015009

PATIENT
  Age: 37 Year
  Sex: Male

DRUGS (1)
  1. OXYCONTIN [Suspect]

REACTIONS (12)
  - ASPIRATION [None]
  - CARDIAC VALVE VEGETATION [None]
  - COLLAPSE OF LUNG [None]
  - DRUG ABUSER [None]
  - DRUG DEPENDENCE [None]
  - ENDOCARDITIS STAPHYLOCOCCAL [None]
  - GLYCOPEPTIDE ANTIBIOTIC RESISTANT ENTEROCOCCAL INFECTION [None]
  - HEPATITIS C [None]
  - INTENTIONAL MISUSE [None]
  - INTRACARDIAC THROMBUS [None]
  - SEPSIS [None]
  - TRICUSPID VALVE DISEASE [None]
